FAERS Safety Report 14072350 (Version 2)
Quarter: 2017Q4

REPORT INFORMATION
  Report Type: Spontaneous
  Country: US (occurrence: US)
  Receive Date: 20171011
  Receipt Date: 20171218
  Transmission Date: 20180321
  Serious: No
  Sender: FDA-Public Use
  Company Number: US-SHIRE-US201724212

PATIENT
  Age: 40 Year
  Sex: Female

DRUGS (1)
  1. NATPARA (PARATHYROID HORMONE) [Suspect]
     Active Substance: PARATHYROID HORMONE
     Indication: HYPOPARATHYROIDISM
     Dosage: 75
     Dates: start: 20150427

REACTIONS (3)
  - Product quality issue [Unknown]
  - Incorrect drug administration duration [Unknown]
  - Tetany [Recovered/Resolved]

NARRATIVE: CASE EVENT DATE: 20170924
